FAERS Safety Report 8111641-2 (Version None)
Quarter: 2012Q1

REPORT INFORMATION
  Report Type: 
  Country: None (occurrence: None)
  Receive Date: 20120203
  Receipt Date: 20120125
  Transmission Date: 20120608
  Serious: Yes (Disabling)
  Sender: FDA-Public Use
  Company Number: PT-SANOFI-AVENTIS-2012SA005273

PATIENT
  Age: 81 Year
  Sex: Female
  Weight: 71 kg

DRUGS (3)
  1. DAFLON 500 [Concomitant]
     Route: 048
  2. TRENTAL [Suspect]
     Route: 048
     Dates: start: 20111203, end: 20111223
  3. CLOPIDOGREL [Concomitant]
     Route: 065
     Dates: start: 20111203

REACTIONS (8)
  - GINGIVITIS [None]
  - PRURITUS [None]
  - DRUG INTERACTION [None]
  - ABASIA [None]
  - BURNING SENSATION [None]
  - ERYTHEMA [None]
  - INSOMNIA [None]
  - GINGIVAL OEDEMA [None]
